FAERS Safety Report 9604384 (Version 1)
Quarter: 2013Q4

REPORT INFORMATION
  Report Type: Spontaneous
  Country: US (occurrence: US)
  Receive Date: 20131008
  Receipt Date: 20131008
  Transmission Date: 20140711
  Serious: No
  Sender: FDA-Public Use
  Company Number: US-GLAXOSMITHKLINE-A1031982A

PATIENT
  Age: 32 Year
  Sex: Female

DRUGS (4)
  1. POTIGA [Suspect]
     Indication: CONVULSION
     Dosage: 50MG THREE TIMES PER DAY
     Route: 048
     Dates: start: 20130502
  2. UNSPECIFIED MEDICATION [Concomitant]
     Indication: ARRHYTHMIA
  3. ARTHRITIS MEDICATION [Concomitant]
  4. ALLERGY MEDICINE [Concomitant]

REACTIONS (4)
  - Visual field defect [Not Recovered/Not Resolved]
  - Arrhythmia [Unknown]
  - Feeling abnormal [Unknown]
  - Chromaturia [Unknown]
